FAERS Safety Report 5732075-1 (Version None)
Quarter: 2008Q2

REPORT INFORMATION
  Report Type: 
  Country: None (occurrence: None)
  Receive Date: 20080506
  Receipt Date: 20080422
  Transmission Date: 20081010
  Serious: Yes (Hospitalization)
  Sender: FDA-Public Use
  Company Number: MPS1-1000054

PATIENT
  Age: 3 Year
  Sex: Female
  Weight: 12 kg

DRUGS (4)
  1. ALDURAZYME [Suspect]
     Indication: MUCOPOLYSACCHARIDOSIS
     Dosage: 0.5 MG/KG
  2. BECLOMETHASONE DIPROPIONATE [Concomitant]
  3. SALBUTAMOL (SALBUTAMOL) [Concomitant]
  4. NIFEDIPINE [Concomitant]

REACTIONS (1)
  - PNEUMONIA [None]
